FAERS Safety Report 5372212-4 (Version None)
Quarter: 2007Q2

REPORT INFORMATION
  Report Type: 
  Country: None (occurrence: None)
  Receive Date: 20070627
  Receipt Date: 20070618
  Transmission Date: 20071010
  Serious: Yes (Other)
  Sender: FDA-Public Use
  Company Number: B0476716A

PATIENT
  Age: 63 Year
  Sex: Male
  Weight: 90 kg

DRUGS (2)
  1. KIVEXA [Suspect]
     Indication: DRUG USE FOR UNKNOWN INDICATION
     Route: 048
     Dates: start: 20070501, end: 20070527
  2. VIRAMUNE [Concomitant]
     Route: 065
     Dates: start: 20040514

REACTIONS (9)
  - BLOOD LACTATE DEHYDROGENASE INCREASED [None]
  - C-REACTIVE PROTEIN INCREASED [None]
  - FATIGUE [None]
  - HYPERSENSITIVITY [None]
  - LEUKOCYTOSIS [None]
  - MOUTH ULCERATION [None]
  - MYALGIA [None]
  - PRURITUS [None]
  - PYREXIA [None]
